FAERS Safety Report 9160020 (Version 1)
Quarter: 2013Q1

REPORT INFORMATION
  Report Type: Spontaneous
  Country: US (occurrence: None)
  Receive Date: 20130214
  Receipt Date: 20130214
  Transmission Date: 20140127
  Serious: Yes (Other)
  Sender: FDA-Public Use
  Company Number: AUR-APL-2013-01209

PATIENT
  Age: 81 Year
  Sex: Male

DRUGS (12)
  1. SERTRALINE (SERTRALINE) (SERTRALINE) [Suspect]
  2. SULFAMETHOXAZOLE AND TRIMETHOPRIM (BACTRIM) [Concomitant]
  3. CLONAZEPAM (CLONAZEPAM) (CLONAZEPAM) [Concomitant]
  4. OLANZAPINE (OLANZAPINE) [Concomitant]
  5. TRAZADONE [Concomitant]
  6. FUROSEMIDE (FUROSEMIDE) [Concomitant]
  7. SPIRONOLACTONE (SPIRONOLACTONE) [Suspect]
  8. GLYBURIDE (GLIBENCLAMIDE) [Concomitant]
  9. ALBUTEROL (SALBUTAMOL) [Concomitant]
  10. SALMETEROL (SALMETEROL) [Concomitant]
  11. BECLOMETHASONE DIPROPIONATE (BECLOMETASONE DIPROPIONATE) [Concomitant]
  12. MONTELUKAST [Concomitant]

REACTIONS (4)
  - Rash [None]
  - Renal failure acute [None]
  - Rash papular [None]
  - Pruritus [None]
